FAERS Safety Report 24872684 (Version 1)
Quarter: 2025Q1

REPORT INFORMATION
  Report Type: Spontaneous
  Country: ID (occurrence: ID)
  Receive Date: 20250122
  Receipt Date: 20250122
  Transmission Date: 20250408
  Serious: Yes (Other)
  Sender: ROCHE
  Company Number: ID-ROCHE-10000177118

PATIENT
  Age: 55 Year
  Sex: Female

DRUGS (9)
  1. TRASTUZUMAB [Suspect]
     Active Substance: TRASTUZUMAB
     Indication: Breast cancer stage III
     Dosage: (440/350)
     Route: 065
     Dates: start: 2019
  2. TRASTUZUMAB [Suspect]
     Active Substance: TRASTUZUMAB
     Route: 065
     Dates: start: 2021, end: 202209
  3. ADO-TRASTUZUMAB EMTANSINE [Suspect]
     Active Substance: ADO-TRASTUZUMAB EMTANSINE
     Indication: Breast cancer stage III
     Route: 065
     Dates: start: 202210
  4. DOCETAXEL [Suspect]
     Active Substance: DOCETAXEL
     Indication: Breast cancer stage III
     Route: 065
     Dates: start: 2019
  5. EPIRUBICIN [Suspect]
     Active Substance: EPIRUBICIN
     Indication: Breast cancer stage III
     Route: 065
     Dates: start: 2019
  6. PERTUZUMAB [Concomitant]
     Active Substance: PERTUZUMAB
     Indication: Breast cancer stage III
     Route: 065
     Dates: start: 2021, end: 202209
  7. PACLITAXEL [Concomitant]
     Active Substance: PACLITAXEL
     Indication: Breast cancer stage III
     Route: 065
     Dates: start: 2021, end: 202209
  8. TAMOXIFEN [Concomitant]
     Active Substance: TAMOXIFEN
  9. GOSERELIN [Concomitant]
     Active Substance: GOSERELIN

REACTIONS (2)
  - Disease progression [Unknown]
  - Respiratory failure [Unknown]
